FAERS Safety Report 10190253 (Version 2)
Quarter: 2014Q2

REPORT INFORMATION
  Report Type: Spontaneous
  Country: US (occurrence: US)
  Receive Date: 20140522
  Receipt Date: 20140522
  Transmission Date: 20141212
  Serious: No
  Sender: FDA-Public Use
  Company Number: US-ASTRAZENECA-2013SE86188

PATIENT
  Age: 49 Year
  Sex: Female
  Weight: 79.4 kg

DRUGS (5)
  1. PULMICORT FLEXHALER [Suspect]
     Indication: ASTHMA
     Dosage: 180MCG,  PRN
     Route: 055
     Dates: start: 2011, end: 2012
  2. PULMICORT FLEXHALER [Suspect]
     Indication: ASTHMA
     Dosage: 180MCG,1 PUFF, DAILY
     Route: 055
     Dates: start: 2012
  3. ALLEREST [Concomitant]
     Indication: MULTIPLE ALLERGIES
  4. ALLERGY SHOTS [Concomitant]
     Indication: MULTIPLE ALLERGIES
  5. FLONASE [Concomitant]

REACTIONS (3)
  - Dyspnoea [Not Recovered/Not Resolved]
  - Asthma [Not Recovered/Not Resolved]
  - Off label use [Recovered/Resolved]
